FAERS Safety Report 14786231 (Version 2)
Quarter: 2018Q2

REPORT INFORMATION
  Report Type: Report from Study
  Country: DE (occurrence: DE)
  Receive Date: 20180420
  Receipt Date: 20180522
  Transmission Date: 20180711
  Serious: Yes (Other)
  Sender: FDA-Public Use
  Company Number: DE-BIOGEN-2018BI00560606

PATIENT
  Age: 32 Year
  Sex: Female
  Weight: 67 kg

DRUGS (4)
  1. L-THYROXIN [Concomitant]
     Active Substance: LEVOTHYROXINE SODIUM
     Indication: PRODUCT USED FOR UNKNOWN INDICATION
     Route: 048
     Dates: start: 20161201
  2. VALETTE [Concomitant]
     Active Substance: DIENOGEST\ETHINYL ESTRADIOL
     Indication: CONTRACEPTION
     Route: 065
     Dates: start: 2012
  3. TYSABRI [Suspect]
     Active Substance: NATALIZUMAB
     Indication: MULTIPLE SCLEROSIS
     Route: 042
     Dates: start: 20130619
  4. SOLIFENACINE [Concomitant]
     Indication: URINARY INCONTINENCE
     Route: 048
     Dates: start: 20171107

REACTIONS (1)
  - Deafness unilateral [Recovered/Resolved]

NARRATIVE: CASE EVENT DATE: 20180127
